FAERS Safety Report 5389995-X (Version None)
Quarter: 2007Q3

REPORT INFORMATION
  Report Type: 
  Country: None (occurrence: None)
  Receive Date: 20070713
  Receipt Date: 20070702
  Transmission Date: 20080115
  Serious: Yes (Death)
  Sender: FDA-Public Use
  Company Number: GXKR2007JP04190

PATIENT
  Age: 10 Month
  Sex: Female

DRUGS (4)
  1. ETHAMBUTOL HYDROCHLORIDE [Suspect]
     Indication: TUBERCULOSIS
  2. ISONIAZID [Suspect]
     Indication: TUBERCULOSIS
  3. RIFAMPICIN [Suspect]
     Indication: TUBERCULOSIS
  4. STREPTOMYCIN SULFATE [Suspect]
     Indication: TUBERCULOSIS

REACTIONS (2)
  - DYSPNOEA [None]
  - RESPIRATORY FAILURE [None]
